FAERS Safety Report 4631120-4 (Version None)
Quarter: 2005Q2

REPORT INFORMATION
  Report Type: 
  Country: None (occurrence: None)
  Receive Date: 20050406
  Receipt Date: 20050406
  Transmission Date: 20051028
  Serious: Yes (Hospitalization)
  Sender: FDA-Public Use
  Company Number: None

PATIENT
  Age: 39 Year
  Sex: Female
  Weight: 91.6266 kg

DRUGS (3)
  1. RISPERDAL [Suspect]
     Indication: SCHIZOPHRENIA
     Dosage: 3 MG ORALLY Q HS
     Route: 048
     Dates: start: 20041109
  2. TEGRETOL [Concomitant]
  3. PHENOBARBITOL [Concomitant]

REACTIONS (2)
  - CONDITION AGGRAVATED [None]
  - DEPRESSION [None]
